FAERS Safety Report 16036531 (Version 1)
Quarter: 2019Q1

REPORT INFORMATION
  Report Type: Spontaneous
  Country: RU (occurrence: RU)
  Receive Date: 20190305
  Receipt Date: 20190305
  Transmission Date: 20190418
  Serious: Yes (Life-Threatening)
  Sender: FDA-Public Use
  Company Number: RU-JNJFOC-20190301802

PATIENT
  Age: 79 Year
  Sex: Female
  Weight: 90 kg

DRUGS (9)
  1. VALOCORDIN [Concomitant]
     Active Substance: BROMISOVAL\HOPS\PHENOBARBITAL
     Indication: CHEST PAIN
     Route: 048
  2. MOXONIDINE [Concomitant]
     Active Substance: MOXONIDINE
     Indication: HYPERTENSION
     Route: 048
  3. LORISTA [Concomitant]
     Active Substance: LOSARTAN POTASSIUM
     Indication: CARDIAC FAILURE
     Route: 065
     Dates: end: 20190122
  4. NO SPA [Concomitant]
     Indication: CHEST PAIN
     Route: 048
  5. LORISTA [Suspect]
     Active Substance: LOSARTAN POTASSIUM
     Indication: HYPERTENSION
     Route: 065
     Dates: start: 20190122, end: 20190124
  6. VEROSPIRON [Concomitant]
     Active Substance: SPIRONOLACTONE
     Indication: HYPERTENSION
     Route: 048
  7. XARELTO [Suspect]
     Active Substance: RIVAROXABAN
     Indication: ATRIAL FIBRILLATION
     Route: 048
     Dates: start: 20190123, end: 20190124
  8. METOPROLOL SUCCINATE. [Suspect]
     Active Substance: METOPROLOL SUCCINATE
     Indication: HYPERTENSION
     Route: 048
     Dates: start: 20190122, end: 20190124
  9. CORONAL [Concomitant]
     Indication: HYPERTENSION
     Route: 048
     Dates: end: 20190122

REACTIONS (5)
  - Cholestasis [Recovering/Resolving]
  - Nausea [Recovering/Resolving]
  - Renal impairment [Recovering/Resolving]
  - Hepatitis fulminant [Recovering/Resolving]
  - Cyanosis [Recovering/Resolving]

NARRATIVE: CASE EVENT DATE: 20190124
